FAERS Safety Report 7204558-9 (Version None)
Quarter: 2010Q4

REPORT INFORMATION
  Report Type: 
  Country: None (occurrence: None)
  Receive Date: 20101230
  Receipt Date: 20101222
  Transmission Date: 20110411
  Serious: Yes (Hospitalization)
  Sender: FDA-Public Use
  Company Number: PHHO2010DE16732

PATIENT
  Sex: Female
  Weight: 85.2 kg

DRUGS (12)
  1. STI571/CGP57148B [Suspect]
     Indication: CHRONIC MYELOID LEUKAEMIA
     Dosage: 400 MG, QD
     Route: 048
     Dates: start: 20100211
  2. XALACOM (LATANOPROST/TIMOLOL MALEATE) [Concomitant]
  3. ONDANSETRON [Concomitant]
  4. ARIMIDEX [Concomitant]
  5. CANDESARTAN [Concomitant]
  6. HYDROCHLOROTHIAZIDE [Concomitant]
  7. LEVOTHYROXINE [Concomitant]
  8. MELPERON ^CT-ARZNEIMITTEL^ [Concomitant]
  9. RASILEZ (ALISKIREN FUMARATE) [Concomitant]
  10. ZINK [Concomitant]
  11. METAMIZOL ^NORMON^ [Concomitant]
  12. ZOLPIDEM [Concomitant]

REACTIONS (7)
  - ABDOMINAL DISCOMFORT [None]
  - DEPRESSION [None]
  - FEAR [None]
  - HEADACHE [None]
  - MENINGIOMA [None]
  - NAUSEA [None]
  - VOMITING [None]
